FAERS Safety Report 7208901-6 (Version None)
Quarter: 2011Q1

REPORT INFORMATION
  Report Type: 
  Country: None (occurrence: None)
  Receive Date: 20110104
  Receipt Date: 20080114
  Transmission Date: 20110831
  Serious: Yes (Other)
  Sender: FDA-Public Use
  Company Number: PHHY2008CA37269

PATIENT
  Sex: Male

DRUGS (1)
  1. SANDOSTATIN LAR [Suspect]
     Dosage: 50 MG, EVERY 4 WEEKS
     Route: 030
     Dates: start: 20070402

REACTIONS (2)
  - GROIN PAIN [None]
  - NEPHROLITHIASIS [None]
